FAERS Safety Report 10278211 (Version 4)
Quarter: 2016Q4

REPORT INFORMATION
  Report Type: Report from Study
  Country: JP (occurrence: JP)
  Receive Date: 20140704
  Receipt Date: 20161013
  Transmission Date: 20170206
  Serious: Yes (Death, Other)
  Sender: FDA-Public Use
  Company Number: JP-ALEXION PHARMACEUTICALS INC.-A201402593

PATIENT
  Age: 64 Year
  Sex: Female
  Weight: 42 kg

DRUGS (20)
  1. MAGMITT [Concomitant]
     Active Substance: MAGNESIUM OXIDE
     Indication: CONSTIPATION
     Dosage: 500 MG, TID
     Route: 048
     Dates: start: 20140402, end: 20150526
  2. FUNGUARD [Concomitant]
     Active Substance: MICAFUNGIN SODIUM
     Indication: FUNGAL INFECTION
     Dosage: 150 MG, QD
     Route: 042
     Dates: start: 20140519, end: 20140616
  3. OXYFAST [Concomitant]
     Active Substance: OXYCODONE
     Indication: CANCER PAIN
     Dosage: 30 MG, UNK
     Route: 065
     Dates: start: 20140527, end: 20140616
  4. SOLIRIS [Suspect]
     Active Substance: ECULIZUMAB
     Indication: HAEMOLYTIC URAEMIC SYNDROME
     Dosage: 900 MG, QW
     Route: 042
     Dates: start: 20140606, end: 20140613
  5. BAKTAR [Concomitant]
     Active Substance: SULFAMETHOXAZOLE\TRIMETHOPRIM
     Indication: INFECTION PROPHYLAXIS
     Dosage: 1 DF, QD
     Route: 048
     Dates: start: 20140402, end: 20140526
  6. FINIBAX [Concomitant]
     Active Substance: DORIPENEM MONOHYDRATE
     Indication: SEPSIS
     Dosage: 0.5 G, TID
     Route: 042
     Dates: start: 20140418, end: 20140419
  7. MEROPEN                            /01250501/ [Concomitant]
     Active Substance: MEROPENEM
     Dosage: 0.5 G, TID
     Route: 042
     Dates: start: 20140604, end: 20140616
  8. NEUTROGIN [Concomitant]
     Active Substance: LENOGRASTIM
     Indication: NEUTROPENIA
     Dosage: 250 ?G, QD
     Route: 042
     Dates: start: 20140511, end: 20140517
  9. PROGRAF [Concomitant]
     Active Substance: TACROLIMUS\TACROLIMUS ANHYDROUS
     Indication: IMMUNOSUPPRESSION
     Dosage: 0.8 MG, QD
     Route: 042
     Dates: start: 20140507, end: 20140528
  10. OMEPRAZOLE. [Concomitant]
     Active Substance: OMEPRAZOLE
     Indication: GASTRIC ULCER
     Dosage: 20 MG, BID
     Route: 042
     Dates: start: 20140527, end: 20140616
  11. VANCOMYCIN [Concomitant]
     Active Substance: VANCOMYCIN
     Indication: SEPSIS
     Dosage: 1 G, BID
     Route: 042
     Dates: start: 20140418, end: 20140515
  12. CUBICIN [Concomitant]
     Active Substance: DAPTOMYCIN
     Indication: SEPSIS
     Dosage: 245 MG, QD
     Route: 042
     Dates: start: 20140516, end: 20140518
  13. FINIBAX [Concomitant]
     Active Substance: DORIPENEM MONOHYDRATE
     Dosage: 1 G, TID
     Route: 042
     Dates: start: 20140519, end: 20140603
  14. MEROPEN                            /01250501/ [Concomitant]
     Active Substance: MEROPENEM
     Indication: SEPSIS
     Dosage: 1 G, TID
     Route: 042
     Dates: start: 20140504, end: 20140518
  15. SOL-MELCORT [Concomitant]
     Active Substance: METHYLPREDNISOLONE SODIUM SUCCINATE
     Indication: IMMUNOSUPPRESSION
     Dosage: 40 MG, QD
     Route: 042
     Dates: start: 20140509, end: 20140616
  16. NEXIUM [Concomitant]
     Active Substance: ESOMEPRAZOLE MAGNESIUM
     Indication: GASTROOESOPHAGEAL REFLUX DISEASE
     Dosage: 20 MG, QD
     Route: 048
     Dates: start: 20140402, end: 20140526
  17. CARBOCISTEINE [Concomitant]
     Active Substance: CARBOCYSTEINE
     Indication: BRONCHITIS
     Dosage: 500 MG, TID
     Route: 048
     Dates: start: 20140402, end: 20140526
  18. AMBISOME [Concomitant]
     Active Substance: AMPHOTERICIN B
     Indication: ASPERGILLUS INFECTION
     Dosage: 125 MG, QD
     Route: 042
     Dates: start: 20140418, end: 20140518
  19. PROMAC                             /00024401/ [Concomitant]
     Active Substance: NITROFURANTOIN
     Indication: GASTRIC ULCER
     Dosage: 75 MG, BID
     Route: 048
     Dates: start: 20140402, end: 20140526
  20. CEFEPIME HYDROCHLORIDE. [Concomitant]
     Active Substance: CEFEPIME HYDROCHLORIDE
     Indication: SEPSIS
     Dosage: 1 G, TID
     Route: 042
     Dates: start: 20140420, end: 20140503

REACTIONS (3)
  - Multiple organ dysfunction syndrome [Fatal]
  - Drug ineffective [Unknown]
  - Graft versus host disease [Fatal]

NARRATIVE: CASE EVENT DATE: 20140614
